FAERS Safety Report 14117621 (Version 1)
Quarter: 2017Q4

REPORT INFORMATION
  Report Type: Report from Study
  Country: None (occurrence: US)
  Receive Date: 20171023
  Receipt Date: 20171023
  Transmission Date: 20180321
  Serious: Yes (Other)
  Sender: FDA-Public Use
  Company Number: US-ABBVIE-17P-163-2135948-00

PATIENT
  Age: 71 Year
  Sex: Male

DRUGS (2)
  1. ANDROGEL [Suspect]
     Active Substance: TESTOSTERONE
     Indication: PRODUCT USED FOR UNKNOWN INDICATION
     Dosage: 2 PUMPS PER DAY
     Route: 061
     Dates: start: 201706, end: 2017
  2. ANDROGEL [Suspect]
     Active Substance: TESTOSTERONE
     Dosage: 1 PUMP PER DAY
     Route: 061
     Dates: start: 2017, end: 2017

REACTIONS (2)
  - Blood testosterone abnormal [Unknown]
  - Prostatic operation [Unknown]

NARRATIVE: CASE EVENT DATE: 2017
